FAERS Safety Report 5699317-2 (Version None)
Quarter: 2008Q2

REPORT INFORMATION
  Report Type: 
  Country: None (occurrence: None)
  Receive Date: 20080404
  Receipt Date: 20080326
  Transmission Date: 20081010
  Serious: Yes (Death, Hospitalization)
  Sender: FDA-Public Use
  Company Number: 2008US000903

PATIENT
  Age: 54 Year
  Sex: Male

DRUGS (4)
  1. PROGRAF [Suspect]
     Indication: RENAL TRANSPLANT
  2. ANTITHYMOCYTE IMMUNOGLOBULIN (RABBIT) (ANTITHYMOCYTE IMMUNOGLOBULIN (R [Concomitant]
  3. PREDNISONE TAB [Concomitant]
  4. MYCOPHENOLATE MOFETIL [Concomitant]

REACTIONS (9)
  - CYTOMEGALOVIRUS INFECTION [None]
  - DEEP VEIN THROMBOSIS [None]
  - EPIDERMAL NECROSIS [None]
  - GENERAL PHYSICAL HEALTH DETERIORATION [None]
  - GRAFT VERSUS HOST DISEASE [None]
  - HYPERKERATOSIS [None]
  - LYMPHOCYTIC INFILTRATION [None]
  - MULTI-ORGAN FAILURE [None]
  - NIGHT SWEATS [None]
